FAERS Safety Report 11561623 (Version 1)
Quarter: 2015Q3

REPORT INFORMATION
  Report Type: Spontaneous
  Country: HR (occurrence: HR)
  Receive Date: 20150928
  Receipt Date: 20150928
  Transmission Date: 20151125
  Serious: No
  Sender: FDA-Public Use
  Company Number: HR-LINDE GAS NORTH AMERICA LLC-HR-LHC-2015124

PATIENT
  Age: 58 Year
  Sex: Female

DRUGS (1)
  1. OXYGEN (GENERIC) [Suspect]
     Active Substance: OXYGEN
     Indication: SURGERY

REACTIONS (3)
  - Subcutaneous emphysema [None]
  - Barotrauma [None]
  - Pneumothorax [None]
